FAERS Safety Report 6486552-9 (Version None)
Quarter: 2009Q4

REPORT INFORMATION
  Report Type: 
  Country: None (occurrence: None)
  Receive Date: 20091209
  Receipt Date: 20091209
  Transmission Date: 20100525
  Serious: Yes (Hospitalization)
  Sender: FDA-Public Use
  Company Number: None

PATIENT
  Age: 85 Year
  Sex: Female
  Weight: 67.9 kg

DRUGS (10)
  1. PLAVIX [Suspect]
     Indication: CORONARY ARTERY DISEASE
     Dosage: 75MG DAILY PO CHRONIC
     Route: 048
  2. ASPIRIN [Suspect]
     Indication: CORONARY ARTERY DISEASE
     Dosage: 81MG/162MG TTHSS/ MWF  PO  CHRONIC
     Route: 048
  3. ACTOS [Concomitant]
  4. ZETIA [Concomitant]
  5. AMLODIPINE [Concomitant]
  6. NIASPAN ER [Concomitant]
  7. FIBERCON [Concomitant]
  8. CRESTOR [Concomitant]
  9. ATENOLOL [Concomitant]
  10. LEVOXYL [Concomitant]

REACTIONS (4)
  - BLOOD GLUCOSE INCREASED [None]
  - GASTRIC HAEMORRHAGE [None]
  - GASTRIC ULCER [None]
  - HIATUS HERNIA [None]
